FAERS Safety Report 8076920-6 (Version None)
Quarter: 2012Q1

REPORT INFORMATION
  Report Type: 
  Country: None (occurrence: None)
  Receive Date: 20120127
  Receipt Date: 20120117
  Transmission Date: 20120608
  Serious: No
  Sender: FDA-Public Use
  Company Number: PHHY2011CA111443

PATIENT
  Sex: Female

DRUGS (18)
  1. ATORVASTATIN [Concomitant]
  2. MELOXICAM [Concomitant]
  3. DOXAZOSIN [Concomitant]
  4. CALCIUM [Concomitant]
  5. ASCORBIC ACID [Concomitant]
  6. LEVOTHYROXINE SODIUM [Concomitant]
  7. VITAMIN D [Concomitant]
  8. ATACAND [Concomitant]
  9. SANDOSTATIN LAR [Suspect]
     Indication: ACROMEGALY
     Dosage: 10 MG, QMO
     Route: 030
     Dates: start: 20110401, end: 20111118
  10. DOMPERIDONE [Concomitant]
  11. RABEPRAZOLE SODIUM [Concomitant]
  12. DILTIAZEM HCL [Concomitant]
  13. GLYBURIDE [Concomitant]
  14. ACETYLSALICYLIC ACID SRT [Concomitant]
  15. INSULIN [Concomitant]
  16. HYDROCHLOROTHIAZIDE [Concomitant]
  17. ENALAPRIL [Concomitant]
  18. NITROGLYCERIN [Concomitant]

REACTIONS (4)
  - DYSGEUSIA [None]
  - DYSPNOEA [None]
  - NAUSEA [None]
  - CHEST PAIN [None]
